FAERS Safety Report 12199867 (Version 1)
Quarter: 2016Q1

REPORT INFORMATION
  Report Type: Spontaneous
  Country: FR (occurrence: FR)
  Receive Date: 20160322
  Receipt Date: 20160322
  Transmission Date: 20160526
  Serious: Yes (Hospitalization, Other)
  Sender: FDA-Public Use
  Company Number: FR-ASTRAZENECA-2016SE15959

PATIENT
  Age: 24236 Day
  Sex: Female

DRUGS (8)
  1. LYNPARZA [Suspect]
     Active Substance: OLAPARIB
     Route: 048
     Dates: start: 201506
  2. CARBOPLATIN. [Concomitant]
     Active Substance: CARBOPLATIN
     Dates: start: 20110718, end: 20111122
  3. TAXOL [Concomitant]
     Active Substance: PACLITAXEL
     Dates: start: 20110718, end: 20111122
  4. GEMZAR [Concomitant]
     Active Substance: GEMCITABINE HYDROCHLORIDE
     Dates: start: 20141205, end: 20150504
  5. LYNPARZA [Suspect]
     Active Substance: OLAPARIB
     Route: 048
  6. AVASTIN [Concomitant]
     Active Substance: BEVACIZUMAB
     Dates: start: 20141205, end: 20150504
  7. LYNPARZA [Suspect]
     Active Substance: OLAPARIB
     Route: 048
     Dates: start: 20151015
  8. LYNPARZA [Suspect]
     Active Substance: OLAPARIB
     Route: 048
     Dates: start: 20150914, end: 20151014

REACTIONS (6)
  - Renal failure [Not Recovered/Not Resolved]
  - Cholestasis [Recovering/Resolving]
  - Anaemia [Recovering/Resolving]
  - Influenza [Unknown]
  - Neutropenia [Recovering/Resolving]
  - Asthenia [Recovered/Resolved]

NARRATIVE: CASE EVENT DATE: 20150817
